FAERS Safety Report 15679370 (Version 1)
Quarter: 2018Q4

REPORT INFORMATION
  Report Type: Spontaneous
  Country: FR (occurrence: FR)
  Receive Date: 20181203
  Receipt Date: 20181203
  Transmission Date: 20190205
  Serious: Yes (Other)
  Sender: FDA-Public Use
  Company Number: FR-AMGEN-FRASP2018170145

PATIENT
  Age: 40 Year
  Sex: Male
  Weight: 77 kg

DRUGS (1)
  1. PROLIA [Suspect]
     Active Substance: DENOSUMAB
     Indication: OSTEOPOROSIS
     Dosage: 1 DF, Q6MO
     Route: 058
     Dates: start: 201407, end: 201707

REACTIONS (2)
  - Pain [Not Recovered/Not Resolved]
  - Spinal fracture [Not Recovered/Not Resolved]

NARRATIVE: CASE EVENT DATE: 20180504
